FAERS Safety Report 13266379 (Version 4)
Quarter: 2017Q4

REPORT INFORMATION
  Report Type: Spontaneous
  Country: JP (occurrence: JP)
  Receive Date: 20170223
  Receipt Date: 20171027
  Transmission Date: 20180320
  Serious: Yes (Death, Other)
  Sender: FDA-Public Use
  Company Number: JP-AMGEN-JPNSP2017027897

PATIENT
  Age: 73 Year
  Sex: Female
  Weight: 41 kg

DRUGS (6)
  1. RANMARK [Suspect]
     Active Substance: DENOSUMAB
     Indication: METASTASES TO BONE
     Dosage: 120 MG, QD
     Route: 058
     Dates: start: 20120718
  2. PROSEXOL [Concomitant]
     Active Substance: ETHINYL ESTRADIOL
     Indication: BREAST CANCER
     Dosage: UNK
     Route: 065
     Dates: start: 201410
  3. FASLODEX [Concomitant]
     Active Substance: FULVESTRANT
     Indication: BREAST CANCER
     Dosage: UNK
     Route: 065
     Dates: start: 201204
  4. RANMARK [Suspect]
     Active Substance: DENOSUMAB
     Indication: METASTASIS
  5. ZOMETA [Suspect]
     Active Substance: ZOLEDRONIC ACID
     Indication: METASTASIS
     Dosage: UNK, UNK
     Route: 065
     Dates: start: 2007, end: 20120718
  6. XELODA [Concomitant]
     Active Substance: CAPECITABINE
     Indication: METASTASIS
     Dosage: UNK
     Route: 065
     Dates: start: 200711, end: 201103

REACTIONS (1)
  - Osteonecrosis of jaw [Not Recovered/Not Resolved]

NARRATIVE: CASE EVENT DATE: 201411
